FAERS Safety Report 18722216 (Version 1)
Quarter: 2021Q1

REPORT INFORMATION
  Report Type: Spontaneous
  Country: IT (occurrence: IT)
  Receive Date: 20210111
  Receipt Date: 20210111
  Transmission Date: 20210419
  Serious: Yes (Death)
  Sender: FDA-Public Use
  Company Number: IT-UNICHEM PHARMACEUTICALS (USA) INC-UCM202012-001554

PATIENT
  Age: 83 Year
  Sex: Male

DRUGS (1)
  1. AMIODARONE HYDROCHLORIDE. [Suspect]
     Active Substance: AMIODARONE HYDROCHLORIDE
     Indication: ATRIAL FIBRILLATION
     Dosage: 150 MG BOLUS FOLLOWED BY CONTINUOUS INFUSION OF 900 MG OVER 24 H.
     Route: 042

REACTIONS (2)
  - Liver injury [Fatal]
  - Hepatic failure [Fatal]
